FAERS Safety Report 21158993 (Version 1)
Quarter: 2022Q3

REPORT INFORMATION
  Report Type: Spontaneous
  Country: FR (occurrence: FR)
  Receive Date: 20220802
  Receipt Date: 20220802
  Transmission Date: 20221027
  Serious: Yes (Other)
  Sender: FDA-Public Use
  Company Number: FR-CELGENE-056-21880-10051193

PATIENT
  Age: 40 Year
  Sex: Female

DRUGS (3)
  1. REVLIMID [Suspect]
     Active Substance: LENALIDOMIDE
     Indication: Lymphoproliferative disorder
     Dosage: 21 DAYS OUT OF A 28 DAY CYCLE
     Route: 048
     Dates: start: 200802, end: 20100201
  2. CLARITHROMYCIN [Concomitant]
     Active Substance: CLARITHROMYCIN
     Indication: Product used for unknown indication
     Route: 065
  3. PREVISCAN [Concomitant]
     Indication: Product used for unknown indication
     Route: 065

REACTIONS (3)
  - Maternal exposure before pregnancy [Recovered/Resolved]
  - Normal newborn [Unknown]
  - Intentional product use issue [Unknown]

NARRATIVE: CASE EVENT DATE: 20101217
